FAERS Safety Report 12392980 (Version 1)
Quarter: 2016Q2

REPORT INFORMATION
  Report Type: Spontaneous
  Country: US (occurrence: US)
  Receive Date: 20160523
  Receipt Date: 20160523
  Transmission Date: 20160815
  Serious: No
  Sender: FDA-Public Use
  Company Number: US-PFIZER INC-2016239388

PATIENT
  Age: 51 Year
  Sex: Male
  Weight: 181.41 kg

DRUGS (2)
  1. LYRICA [Suspect]
     Active Substance: PREGABALIN
     Dosage: 150 MG, UNK
  2. LYRICA [Suspect]
     Active Substance: PREGABALIN
     Indication: NEURALGIA
     Dosage: 400 MG, UNK

REACTIONS (5)
  - Libido decreased [Unknown]
  - Abnormal dreams [Unknown]
  - Drug intolerance [Unknown]
  - Oedema [Unknown]
  - Swelling [Unknown]
